FAERS Safety Report 17435033 (Version 3)
Quarter: 2020Q1

REPORT INFORMATION
  Report Type: Spontaneous
  Country: GB (occurrence: GB)
  Receive Date: 20200219
  Receipt Date: 20200324
  Transmission Date: 20200409
  Serious: Yes (Death, Hospitalization)
  Sender: FDA-Public Use
  Company Number: NVSC2020GB033027

PATIENT
  Age: 29 Year
  Sex: Male

DRUGS (1)
  1. EXJADE [Suspect]
     Active Substance: DEFERASIROX
     Indication: SICKLE CELL DISEASE
     Route: 065

REACTIONS (12)
  - Back pain [Unknown]
  - Chest pain [Unknown]
  - Cardiac arrest [Fatal]
  - Pain [Unknown]
  - Rhinovirus infection [Unknown]
  - Productive cough [Unknown]
  - Oxygen saturation [Unknown]
  - Haemoglobin abnormal [Unknown]
  - Musculoskeletal pain [Unknown]
  - Cardiopulmonary failure [Fatal]
  - Acute chest syndrome [Fatal]
  - Arthralgia [Unknown]
